FAERS Safety Report 21532755 (Version 12)
Quarter: 2024Q4

REPORT INFORMATION
  Report Type: Spontaneous
  Country: CA (occurrence: CA)
  Receive Date: 20221101
  Receipt Date: 20241226
  Transmission Date: 20250115
  Serious: Yes (Hospitalization, Other)
  Sender: TERSERA THERAPEUTICS
  Company Number: CA-AstraZeneca-2021A051746

PATIENT

DRUGS (103)
  1. GOSERELIN [Suspect]
     Active Substance: GOSERELIN
     Indication: Prostate cancer metastatic
     Dosage: UNKNOWN DOSE AND FREQUENCY
     Route: 058
  2. GOSERELIN [Suspect]
     Active Substance: GOSERELIN
     Indication: Bone cancer
     Dosage: UNKNOWN DOSE AND FREQUENCY
     Route: 058
  3. GOSERELIN [Suspect]
     Active Substance: GOSERELIN
     Dosage: UNKNOWN DOSE AND FREQUENCY
     Route: 058
  4. GOSERELIN [Suspect]
     Active Substance: GOSERELIN
     Dosage: UNKNOWN DOSE AND FREQUENCY
     Route: 058
  5. GOSERELIN [Suspect]
     Active Substance: GOSERELIN
     Dosage: UNKNOWN DOSE AND FREQUENCY
     Route: 058
  6. GOSERELIN [Suspect]
     Active Substance: GOSERELIN
     Dosage: UNKNOWN DOSE AND FREQUENCY
     Route: 058
  7. GOSERELIN [Suspect]
     Active Substance: GOSERELIN
     Dosage: UNKNOWN DOSE AND FREQUENCY
     Route: 058
  8. GOSERELIN [Suspect]
     Active Substance: GOSERELIN
     Dosage: UNKNOWN DOSE AND FREQUENCY
     Route: 058
  9. GOSERELIN [Suspect]
     Active Substance: GOSERELIN
     Dosage: UNKNOWN DOSE AND FREQUENCY
     Route: 058
  10. GOSERELIN [Suspect]
     Active Substance: GOSERELIN
     Dosage: UNKNOWN DOSE AND FREQUENCY
     Route: 058
  11. GOSERELIN [Suspect]
     Active Substance: GOSERELIN
     Dosage: UNKNOWN DOSE AND FREQUENCY
     Route: 058
  12. GOSERELIN [Suspect]
     Active Substance: GOSERELIN
     Dosage: UNKNOWN DOSE AND FREQUENCY
     Route: 058
  13. GOSERELIN [Suspect]
     Active Substance: GOSERELIN
     Dosage: UNK
     Route: 058
  14. GOSERELIN [Suspect]
     Active Substance: GOSERELIN
     Dosage: UNK
     Route: 058
  15. ZOLADEX [Suspect]
     Active Substance: GOSERELIN ACETATE
     Indication: Prostate cancer metastatic
     Dosage: UNK
     Route: 065
  16. ZOLADEX [Suspect]
     Active Substance: GOSERELIN ACETATE
     Indication: Bone cancer
  17. CASODEX [Suspect]
     Active Substance: BICALUTAMIDE
     Indication: Prostate cancer metastatic
     Dosage: UNKNOWN DOSE AND FREQUENCY
     Route: 048
  18. CASODEX [Suspect]
     Active Substance: BICALUTAMIDE
     Indication: Bone cancer
     Dosage: UNKNOWN DOSE AND FREQUENCY
     Route: 048
  19. CASODEX [Suspect]
     Active Substance: BICALUTAMIDE
     Dosage: UNKNOWN DOSE AND FREQUENCY
     Route: 048
  20. CASODEX [Suspect]
     Active Substance: BICALUTAMIDE
     Dosage: UNKNOWN DOSE AND FREQUENCY
     Route: 048
  21. CASODEX [Suspect]
     Active Substance: BICALUTAMIDE
     Dosage: UNKNOWN DOSE AND FREQUENCY
     Route: 048
  22. CASODEX [Suspect]
     Active Substance: BICALUTAMIDE
     Dosage: UNKNOWN DOSE AND FREQUENCY
     Route: 048
  23. CASODEX [Suspect]
     Active Substance: BICALUTAMIDE
     Dosage: UNKNOWN DOSE AND FREQUENCY
     Route: 048
  24. CASODEX [Suspect]
     Active Substance: BICALUTAMIDE
     Dosage: UNKNOWN DOSE AND FREQUENCY
     Route: 048
  25. CASODEX [Suspect]
     Active Substance: BICALUTAMIDE
     Dosage: UNKNOWN DOSE AND FREQUENCY
     Route: 048
  26. CASODEX [Suspect]
     Active Substance: BICALUTAMIDE
     Dosage: UNKNOWN DOSE AND FREQUENCY
     Route: 048
  27. CASODEX [Suspect]
     Active Substance: BICALUTAMIDE
     Dosage: UNKNOWN DOSE AND FREQUENCY
     Route: 048
  28. CASODEX [Suspect]
     Active Substance: BICALUTAMIDE
     Dosage: UNKNOWN DOSE AND FREQUENCY
     Route: 048
  29. CASODEX [Suspect]
     Active Substance: BICALUTAMIDE
     Dosage: UNKNOWN DOSE AND FREQUENCY
     Route: 048
  30. CASODEX [Suspect]
     Active Substance: BICALUTAMIDE
     Dosage: UNKNOWN DOSE AND FREQUENCY
     Route: 048
  31. CASODEX [Suspect]
     Active Substance: BICALUTAMIDE
     Dosage: UNKNOWN DOSE AND FREQUENCY
     Route: 048
  32. CASODEX [Suspect]
     Active Substance: BICALUTAMIDE
     Dosage: UNKNOWN DOSE AND FREQUENCY
     Route: 048
  33. CASODEX [Suspect]
     Active Substance: BICALUTAMIDE
     Dosage: UNKNOWN DOSE AND FREQUENCY
     Route: 048
  34. CASODEX [Suspect]
     Active Substance: BICALUTAMIDE
     Dosage: UNKNOWN DOSE AND FREQUENCY
     Route: 048
  35. CASODEX [Suspect]
     Active Substance: BICALUTAMIDE
     Dosage: UNKNOWN DOSE AND FREQUENCY
     Route: 048
  36. CASODEX [Suspect]
     Active Substance: BICALUTAMIDE
     Dosage: UNKNOWN DOSE AND FREQUENCY
     Route: 048
  37. CASODEX [Suspect]
     Active Substance: BICALUTAMIDE
     Dosage: UNKNOWN DOSE AND FREQUENCY
     Route: 048
  38. CASODEX [Suspect]
     Active Substance: BICALUTAMIDE
     Dosage: UNKNOWN DOSE AND FREQUENCY
     Route: 048
  39. CASODEX [Suspect]
     Active Substance: BICALUTAMIDE
     Dosage: UNKNOWN DOSE AND FREQUENCY
     Route: 048
  40. CASODEX [Suspect]
     Active Substance: BICALUTAMIDE
     Dosage: UNKNOWN DOSE AND FREQUENCY
     Route: 048
  41. CASODEX [Suspect]
     Active Substance: BICALUTAMIDE
     Dosage: UNKNOWN DOSE AND FREQUENCY
     Route: 048
  42. CASODEX [Suspect]
     Active Substance: BICALUTAMIDE
     Dosage: UNKNOWN DOSE AND FREQUENCY
     Route: 048
  43. CASODEX [Suspect]
     Active Substance: BICALUTAMIDE
     Dosage: UNKNOWN DOSE AND FREQUENCY
     Route: 048
  44. CASODEX [Suspect]
     Active Substance: BICALUTAMIDE
     Dosage: UNKNOWN DOSE AND FREQUENCY
     Route: 048
  45. CASODEX [Suspect]
     Active Substance: BICALUTAMIDE
     Dosage: UNKNOWN DOSE AND FREQUENCY
     Route: 048
  46. CASODEX [Suspect]
     Active Substance: BICALUTAMIDE
     Dosage: UNKNOWN DOSE AND FREQUENCY
     Route: 048
  47. CASODEX [Suspect]
     Active Substance: BICALUTAMIDE
     Dosage: UNKNOWN DOSE AND FREQUENCY
     Route: 048
  48. CASODEX [Suspect]
     Active Substance: BICALUTAMIDE
     Dosage: UNKNOWN DOSE AND FREQUENCY
     Route: 048
  49. CASODEX [Suspect]
     Active Substance: BICALUTAMIDE
     Dosage: UNKNOWN DOSE AND FREQUENCY
     Route: 048
  50. CASODEX [Suspect]
     Active Substance: BICALUTAMIDE
     Dosage: UNKNOWN DOSE AND FREQUENCY
     Route: 048
  51. CASODEX [Suspect]
     Active Substance: BICALUTAMIDE
     Dosage: UNKNOWN DOSE AND FREQUENCY
     Route: 048
  52. CASODEX [Suspect]
     Active Substance: BICALUTAMIDE
     Dosage: UNKNOWN DOSE AND FREQUENCY
     Route: 048
  53. CASODEX [Suspect]
     Active Substance: BICALUTAMIDE
     Dosage: UNKNOWN DOSE AND FREQUENCY
     Route: 048
  54. CASODEX [Suspect]
     Active Substance: BICALUTAMIDE
     Dosage: UNKNOWN DOSE AND FREQUENCY
     Route: 048
  55. ENTYVIO [Suspect]
     Active Substance: VEDOLIZUMAB
     Indication: Crohn^s disease
     Dosage: 300.0MG UNKNOWN, FREQUENCY: UNK
     Route: 042
     Dates: start: 20200206
  56. ENTYVIO [Suspect]
     Active Substance: VEDOLIZUMAB
     Dosage: 300 MILLIGRAM
     Route: 042
  57. ENTYVIO [Suspect]
     Active Substance: VEDOLIZUMAB
     Dosage: 300 MILLIGRAM
     Route: 042
  58. ENTYVIO [Suspect]
     Active Substance: VEDOLIZUMAB
     Dosage: 300 MILLIGRAM
     Route: 042
  59. ENTYVIO [Suspect]
     Active Substance: VEDOLIZUMAB
     Dosage: 300 MILLIGRAM
     Route: 042
  60. ENTYVIO [Suspect]
     Active Substance: VEDOLIZUMAB
     Dosage: 300 MILLIGRAM
     Route: 042
  61. ENTYVIO [Suspect]
     Active Substance: VEDOLIZUMAB
     Dosage: 300 MILLIGRAM
     Route: 042
  62. ENTYVIO [Suspect]
     Active Substance: VEDOLIZUMAB
     Dosage: 300 MILLIGRAM
     Route: 042
  63. ENTYVIO [Suspect]
     Active Substance: VEDOLIZUMAB
     Dosage: 300 MILLIGRAM
     Route: 042
  64. ENTYVIO [Suspect]
     Active Substance: VEDOLIZUMAB
     Dosage: 300 MILLIGRAM
     Route: 042
  65. ENTYVIO [Suspect]
     Active Substance: VEDOLIZUMAB
     Dosage: 300 MILLIGRAM, UNK, FREQUENCY: UNK
     Route: 042
  66. ENTYVIO [Suspect]
     Active Substance: VEDOLIZUMAB
     Dosage: 300 MILLIGRAM, UNK, FREQUENCY: UNK
     Route: 042
  67. ENTYVIO [Suspect]
     Active Substance: VEDOLIZUMAB
     Dosage: 300 MILLIGRAM, UNK, FREQUENCY: UNK
     Route: 042
  68. ENTYVIO [Suspect]
     Active Substance: VEDOLIZUMAB
     Dosage: 300 MILLIGRAM, UNK, FREQUENCY: UNK
     Route: 042
  69. ENTYVIO [Suspect]
     Active Substance: VEDOLIZUMAB
     Dosage: 300 MILLIGRAM, UNK, FREQUENCY: UNK
     Route: 042
  70. ENTYVIO [Suspect]
     Active Substance: VEDOLIZUMAB
     Dosage: 300 MILLIGRAM, UNK, FREQUENCY: UNK
     Route: 042
  71. ENTYVIO [Suspect]
     Active Substance: VEDOLIZUMAB
     Dosage: 300 MILLIGRAM, UNK, FREQUENCY: UNK
     Route: 042
  72. ENTYVIO [Suspect]
     Active Substance: VEDOLIZUMAB
     Dosage: 300 MILLIGRAM, UNK, FREQUENCY: UNK
     Route: 042
  73. ENTYVIO [Suspect]
     Active Substance: VEDOLIZUMAB
     Dosage: 300 MILLIGRAM, UNK, FREQUENCY: UNK
     Route: 042
  74. ENTYVIO [Suspect]
     Active Substance: VEDOLIZUMAB
     Dosage: 300 MILLIGRAM
     Route: 042
  75. ENTYVIO [Suspect]
     Active Substance: VEDOLIZUMAB
     Dosage: 300 MILLIGRAM
     Route: 042
  76. ENTYVIO [Suspect]
     Active Substance: VEDOLIZUMAB
     Dosage: 300 MILLIGRAM
     Route: 042
  77. ENTYVIO [Suspect]
     Active Substance: VEDOLIZUMAB
     Dosage: 300 MILLIGRAM
     Route: 042
  78. ENTYVIO [Suspect]
     Active Substance: VEDOLIZUMAB
     Dosage: 300 MILLIGRAM
     Route: 042
  79. ENTYVIO [Suspect]
     Active Substance: VEDOLIZUMAB
     Dosage: 300 MILLIGRAM
     Route: 042
  80. ENTYVIO [Suspect]
     Active Substance: VEDOLIZUMAB
     Dosage: 300 MILLIGRAM
     Route: 042
  81. ENTYVIO [Suspect]
     Active Substance: VEDOLIZUMAB
     Dosage: 300 MILLIGRAM
     Route: 042
  82. ENTYVIO [Suspect]
     Active Substance: VEDOLIZUMAB
     Dosage: 300 MILLIGRAM
     Route: 042
  83. ASPIRIN [Concomitant]
     Active Substance: ASPIRIN
     Indication: Product used for unknown indication
     Dosage: 81 MILLIGRAM, UNK, FREQUENCY: UNK
     Route: 048
  84. CALCIUM [Concomitant]
     Active Substance: CALCIUM
     Indication: Product used for unknown indication
     Dosage: UNK
     Route: 048
  85. CALCIUM [Concomitant]
     Active Substance: CALCIUM
     Dosage: UNK
     Route: 048
  86. PINAVERIUM BROMIDE [Concomitant]
     Active Substance: PINAVERIUM BROMIDE
     Indication: Product used for unknown indication
     Dosage: 100 MG
     Route: 048
  87. PINAVERIUM BROMIDE [Concomitant]
     Active Substance: PINAVERIUM BROMIDE
     Dosage: 100 MILLIGRAM, UNK, FREQUENCY: UNK
     Route: 048
  88. EDOXABAN [Concomitant]
     Active Substance: EDOXABAN
     Indication: Product used for unknown indication
     Dosage: 60 MG
     Route: 065
  89. EDOXABAN [Concomitant]
     Active Substance: EDOXABAN
     Dosage: 60 MILLIGRAM, UNK, FREQUENCY: UNK
     Route: 065
  90. FINASTERIDE [Concomitant]
     Active Substance: FINASTERIDE
     Indication: Product used for unknown indication
     Dosage: 5 MG
     Route: 048
  91. JARDIANCE [Concomitant]
     Active Substance: EMPAGLIFLOZIN
     Indication: Product used for unknown indication
     Dosage: 10 MG
     Route: 065
  92. JARDIANCE [Concomitant]
     Active Substance: EMPAGLIFLOZIN
     Dosage: 10 MILLIGRAM, UNK, FREQUENCY: UNK
     Route: 065
  93. METFORMIN HYDROCHLORIDE [Concomitant]
     Active Substance: METFORMIN HYDROCHLORIDE
     Indication: Product used for unknown indication
     Dosage: 500 MILLIGRAM, UNK, FREQUENCY: UNK
     Route: 048
  94. PANTOPRAZOLE SODIUM [Concomitant]
     Active Substance: PANTOPRAZOLE SODIUM
     Indication: Product used for unknown indication
     Dosage: 40 MILLIGRAM, UNK, FREQUENCY: UNK
     Route: 048
  95. SENOKOT [Concomitant]
     Active Substance: SENNOSIDES
     Indication: Product used for unknown indication
     Dosage: UNK
     Route: 048
  96. SENOKOT [Concomitant]
     Active Substance: SENNOSIDES
     Dosage: UNK
     Route: 048
  97. TADALAFIL [Concomitant]
     Active Substance: TADALAFIL
     Indication: Product used for unknown indication
     Dosage: 5 MG
     Route: 048
  98. TADALAFIL [Concomitant]
     Active Substance: TADALAFIL
     Dosage: 5 MILLIGRAM, UNK, FREQUENCY: UNK
     Route: 048
  99. VALSARTAN [Concomitant]
     Active Substance: VALSARTAN
     Indication: Product used for unknown indication
     Dosage: 160 MG
     Route: 048
  100. VALSARTAN [Concomitant]
     Active Substance: VALSARTAN
     Dosage: 160 MILLIGRAM, UNK, FREQUENCY: UNK
     Route: 048
  101. VITAMIN D NOS [Concomitant]
     Active Substance: CHOLECALCIFEROL\ERGOCALCIFEROL
     Indication: Product used for unknown indication
     Dosage: UNK
     Route: 048
  102. VITAMIN K [Concomitant]
     Active Substance: PHYTONADIONE
     Indication: Product used for unknown indication
     Dosage: UNK
     Route: 048
  103. VITAMIN K [Concomitant]
     Active Substance: PHYTONADIONE
     Route: 048

REACTIONS (18)
  - Abnormal faeces [Not Recovered/Not Resolved]
  - Intestinal mass [Not Recovered/Not Resolved]
  - Small intestinal obstruction [Not Recovered/Not Resolved]
  - Faeces hard [Not Recovered/Not Resolved]
  - Cardiac disorder [Not Recovered/Not Resolved]
  - Metastases to bone [Not Recovered/Not Resolved]
  - Prostate cancer metastatic [Not Recovered/Not Resolved]
  - Blood pressure increased [Not Recovered/Not Resolved]
  - Epistaxis [Not Recovered/Not Resolved]
  - Malaise [Not Recovered/Not Resolved]
  - Nausea [Not Recovered/Not Resolved]
  - Diarrhoea [Not Recovered/Not Resolved]
  - Abdominal pain lower [Not Recovered/Not Resolved]
  - Constipation [Not Recovered/Not Resolved]
  - Pain [Not Recovered/Not Resolved]
  - Eczema [Not Recovered/Not Resolved]
  - Flatulence [Not Recovered/Not Resolved]
  - Faeces soft [Not Recovered/Not Resolved]
